FAERS Safety Report 8976253 (Version 16)
Quarter: 2016Q1

REPORT INFORMATION
  Report Type: Report from Study
  Country: CA (occurrence: CA)
  Receive Date: 20121220
  Receipt Date: 20160325
  Transmission Date: 20160526
  Serious: Yes (Hospitalization, Other)
  Sender: FDA-Public Use
  Company Number: PHHY2012CA025140

PATIENT
  Age: 71 Year
  Sex: Female

DRUGS (2)
  1. SANDOSTATIN LAR DEPOT [Suspect]
     Active Substance: OCTREOTIDE ACETATE
     Indication: CARCINOID TUMOUR
     Dosage: 30 MG, TIW (EVERY 3 WEEKS)
     Route: 030
     Dates: start: 20111222
  2. SANDOSTATIN LAR DEPOT [Suspect]
     Active Substance: OCTREOTIDE ACETATE
     Dosage: 60 MG, TIW (EVERY 3 WEEKS)
     Route: 030

REACTIONS (20)
  - Urinary tract infection [Unknown]
  - Aphasia [Unknown]
  - Product quality issue [Unknown]
  - Weight decreased [Unknown]
  - Blood pressure diastolic decreased [Unknown]
  - Swelling face [Unknown]
  - Dehydration [Unknown]
  - Intestinal obstruction [Unknown]
  - Recurrent cancer [Unknown]
  - Influenza [Unknown]
  - Fall [Unknown]
  - Movement disorder [Unknown]
  - Muscle rigidity [Unknown]
  - Diarrhoea [Not Recovered/Not Resolved]
  - Constipation [Unknown]
  - Blood pressure increased [Unknown]
  - Pyrexia [Unknown]
  - Vomiting [Unknown]
  - Blood pressure systolic increased [Unknown]
  - Inappropriate schedule of drug administration [Unknown]

NARRATIVE: CASE EVENT DATE: 20140630
